FAERS Safety Report 21689785 (Version 1)
Quarter: 2022Q4

REPORT INFORMATION
  Report Type: Other
  Country: GB (occurrence: GB)
  Receive Date: 20221206
  Receipt Date: 20221206
  Transmission Date: 20230113
  Serious: Yes (Other)
  Sender: FDA-Public Use
  Company Number: None

PATIENT
  Sex: Male

DRUGS (3)
  1. CLARISCAN [Suspect]
     Active Substance: GADOTERATE MEGLUMINE
     Indication: Diagnostic procedure
     Dosage: 15 ML, SINGLE
     Route: 065
     Dates: start: 20221130, end: 20221130
  2. CLARISCAN [Suspect]
     Active Substance: GADOTERATE MEGLUMINE
     Indication: Product used for unknown indication
  3. BUTYLSCOPOLAMINE BROMIDE [Suspect]
     Active Substance: BUTYLSCOPOLAMINE BROMIDE
     Indication: Product used for unknown indication
     Dosage: 1 ML
     Route: 065
     Dates: start: 20221130

REACTIONS (1)
  - Gadolinium deposition disease [Recovering/Resolving]

NARRATIVE: CASE EVENT DATE: 20221130
